FAERS Safety Report 17832503 (Version 3)
Quarter: 2021Q2

REPORT INFORMATION
  Report Type: Spontaneous
  Country: US (occurrence: US)
  Receive Date: 20200528
  Receipt Date: 20210418
  Transmission Date: 20210717
  Serious: Yes (Other)
  Sender: FDA-Public Use
  Company Number: US-UCBSA-2020000389

PATIENT
  Age: 37 Year
  Sex: Female
  Weight: 69 kg

DRUGS (27)
  1. CIMZIA [Suspect]
     Active Substance: CERTOLIZUMAB PEGOL
     Dosage: 200 MILLIGRAM EVERY 3.3 MONTHLY
     Route: 058
     Dates: start: 20191218, end: 20200201
  2. CIMZIA [Suspect]
     Active Substance: CERTOLIZUMAB PEGOL
     Dosage: 150 MILLIGRAM, ONCE DAILY (QD)
     Route: 058
     Dates: start: 20200531, end: 20200531
  3. MELATONIN [Concomitant]
     Active Substance: MELATONIN
     Indication: SLEEP DISORDER
     Dosage: 5 MILLIGRAM, ONCE DAILY (QD)
     Dates: start: 2019
  4. ATROVENT [Concomitant]
     Active Substance: IPRATROPIUM BROMIDE
     Indication: VIRAL INFECTION
     Dosage: UNK
     Dates: start: 20200317, end: 20200404
  5. MAGNESIUM SULFATE. [Concomitant]
     Active Substance: MAGNESIUM SULFATE
     Indication: POSTPONEMENT OF PRETERM DELIVERY
     Dosage: UNK
     Route: 042
     Dates: start: 20200521, end: 20200524
  6. METAMUCIL [Concomitant]
     Active Substance: PLANTAGO SEED
     Indication: CONSTIPATION
     Dosage: UNK
     Route: 048
     Dates: start: 20200309, end: 20200309
  7. TERCONAZOLE. [Concomitant]
     Active Substance: TERCONAZOLE
     Indication: FUNGAL INFECTION
     Dosage: UNK
     Dates: start: 20200427, end: 20200429
  8. TERCONAZOLE. [Concomitant]
     Active Substance: TERCONAZOLE
     Dosage: UNK
     Dates: start: 20200507, end: 20200509
  9. MONISTAT 7 [Concomitant]
     Active Substance: MICONAZOLE NITRATE
     Indication: FUNGAL INFECTION
     Dosage: UNK
     Dates: start: 20200411, end: 20200417
  10. ZITHROMAX [Concomitant]
     Active Substance: AZITHROMYCIN DIHYDRATE
     Indication: PHARYNGITIS
     Dosage: UNK
     Route: 048
     Dates: start: 20200226, end: 20200226
  11. FOLIC ACID. [Concomitant]
     Active Substance: FOLIC ACID
     Indication: PRODUCT USED FOR UNKNOWN INDICATION
     Dosage: 80 MILLIGRAM, ONCE DAILY (QD)
  12. CEFDINIR. [Concomitant]
     Active Substance: CEFDINIR
     Indication: PHARYNGITIS
     Dosage: UNK
     Route: 048
     Dates: start: 20200201, end: 20200210
  13. TDAP [Concomitant]
     Active Substance: TETANUS TOXOID, REDUCED DIPHTHERIA TOXOID AND ACELLULAR PERTUSSIS VACCINE ADSORBED, TDAP
     Dosage: UNK
     Route: 030
     Dates: start: 20200521, end: 20200521
  14. BETAMETHASONE. [Concomitant]
     Active Substance: BETAMETHASONE
  15. CIMZIA [Suspect]
     Active Substance: CERTOLIZUMAB PEGOL
     Dosage: 150 MILLIGRAM, ONCE DAILY (QD)
     Route: 058
     Dates: start: 20200511, end: 20200511
  16. CIMZIA [Suspect]
     Active Substance: CERTOLIZUMAB PEGOL
     Indication: ANKYLOSING SPONDYLITIS
     Dosage: 150 MILLIGRAM, ONCE DAILY (QD)
     Route: 058
     Dates: start: 20191210, end: 20191210
  17. DUREZOL [Concomitant]
     Active Substance: DIFLUPREDNATE
     Indication: UVEITIS
     Dosage: UNK
     Route: 061
     Dates: start: 2005
  18. PRED FORTE [Concomitant]
     Active Substance: PREDNISOLONE ACETATE
     Indication: UVEITIS
     Dosage: UNK
     Route: 047
     Dates: start: 20200521, end: 20200525
  19. CIMZIA [Suspect]
     Active Substance: CERTOLIZUMAB PEGOL
     Dosage: 100 MILLIGRAM, ONCE DAILY (QD)
     Route: 058
     Dates: start: 20200316, end: 20200316
  20. NEXIUM I.V. [Concomitant]
     Active Substance: ESOMEPRAZOLE SODIUM
     Indication: ABDOMINAL DISCOMFORT
     Dosage: 20 MILLIGRAM, ONCE DAILY (QD)
     Dates: start: 2014
  21. LEVALBUTEROL HCL [Concomitant]
     Active Substance: LEVALBUTEROL HYDROCHLORIDE
     Indication: VIRAL INFECTION
     Dosage: UNK
     Dates: start: 20200316, end: 20200404
  22. PRENATAL VITAMINS [ASCORBIC ACID;BETACAROTENE;CALCIUM SULFATE;COLECALC [Concomitant]
     Active Substance: MINERALS\VITAMINS
     Dosage: UNK
     Route: 048
     Dates: start: 20191120, end: 20191128
  23. ZITHROMAX [Concomitant]
     Active Substance: AZITHROMYCIN DIHYDRATE
     Dosage: UNK
     Route: 048
     Dates: start: 20200227, end: 20200301
  24. PREDNISONE. [Concomitant]
     Active Substance: PREDNISONE
     Dosage: UNK
     Dates: end: 2019
  25. CIMZIA [Suspect]
     Active Substance: CERTOLIZUMAB PEGOL
     Indication: PSORIATIC ARTHROPATHY
     Dosage: 200 MILLIGRAM, EVERY 3.8 MONTHLY
     Route: 058
     Dates: start: 20190502, end: 20191121
  26. CIMZIA [Suspect]
     Active Substance: CERTOLIZUMAB PEGOL
     Dosage: 100 MILLIGRAM, ONCE DAILY (QD)
     Route: 058
     Dates: start: 20200407, end: 20200407
  27. CEFDINIR. [Concomitant]
     Active Substance: CEFDINIR
     Dosage: UNK
     Route: 048
     Dates: start: 20200426, end: 20200512

REACTIONS (9)
  - Pulmonary congestion [Recovered/Resolved]
  - Pharyngitis bacterial [Recovered/Resolved]
  - Dyspnoea [Recovered/Resolved]
  - Off label use [Unknown]
  - Maternal exposure before pregnancy [Unknown]
  - Premature delivery [Unknown]
  - Fungal infection [Recovered/Resolved]
  - Pharyngitis [Recovered/Resolved]
  - Therapeutic response unexpected [Unknown]

NARRATIVE: CASE EVENT DATE: 20191104
